FAERS Safety Report 17843592 (Version 1)
Quarter: 2020Q2

REPORT INFORMATION
  Report Type: Spontaneous
  Country: CA (occurrence: CA)
  Receive Date: 20200531
  Receipt Date: 20200531
  Transmission Date: 20200714
  Serious: Yes (Other)
  Sender: FDA-Public Use
  Company Number: CA-TEVA-2020-CA-1242430

PATIENT
  Age: 51 Year
  Sex: Female
  Weight: 109 kg

DRUGS (6)
  1. RAMIPRIL. [Concomitant]
     Active Substance: RAMIPRIL
  2. BETACAROTENE/BIOTIN/CALCIUM CARBONATE/CALCIUM D PANTOTHENATE/CHROMIC C [Concomitant]
  3. PACLITAXEL. [Suspect]
     Active Substance: PACLITAXEL
     Indication: BREAST CANCER
     Route: 042
  4. SALBUTAMOL [Concomitant]
     Active Substance: ALBUTEROL
  5. LEVAQUIN [Concomitant]
     Active Substance: LEVOFLOXACIN
  6. HYDROCHLOROTHIAZIDE. [Concomitant]
     Active Substance: HYDROCHLOROTHIAZIDE

REACTIONS (4)
  - Chest pain [Recovered/Resolved]
  - Chest X-ray abnormal [Recovered/Resolved]
  - Cough [Recovered/Resolved]
  - Dyspnoea [Recovered/Resolved]
